FAERS Safety Report 7900464-2 (Version None)
Quarter: 2011Q4

REPORT INFORMATION
  Report Type: 
  Country: None (occurrence: None)
  Receive Date: 20111108
  Receipt Date: 20111025
  Transmission Date: 20120403
  Serious: Yes (Death)
  Sender: FDA-Public Use
  Company Number: US-MYLANLABS-2011S1022456

PATIENT
  Age: 66 Year
  Sex: Male

DRUGS (2)
  1. DILTIAZEM HCL [Suspect]
     Route: 065
  2. COLCHICINE [Interacting]
     Route: 065

REACTIONS (3)
  - GASTROINTESTINAL DISORDER [None]
  - DRUG INTERACTION [None]
  - TOXICITY TO VARIOUS AGENTS [None]
